FAERS Safety Report 19821459 (Version 1)
Quarter: 2021Q3

REPORT INFORMATION
  Report Type: Spontaneous
  Country: FR (occurrence: FR)
  Receive Date: 20210913
  Receipt Date: 20210913
  Transmission Date: 20211014
  Serious: Yes (Death, Life-Threatening)
  Sender: FDA-Public Use
  Company Number: FR-ACCORD-238523

PATIENT
  Age: 80 Year
  Sex: Female
  Weight: 60 kg

DRUGS (1)
  1. METHOTREXATE. [Suspect]
     Active Substance: METHOTREXATE
     Indication: RHEUMATOID ARTHRITIS
     Dosage: OVER 2 DAYS
     Route: 048
     Dates: start: 20210604, end: 20210615

REACTIONS (5)
  - Leukopenia [Fatal]
  - Agranulocytosis [Fatal]
  - Thrombocytopenia [Fatal]
  - Mucosal inflammation [Fatal]
  - Pyrexia [Fatal]

NARRATIVE: CASE EVENT DATE: 20210614
